FAERS Safety Report 9745813 (Version 1)
Quarter: 2013Q4

REPORT INFORMATION
  Report Type: Spontaneous
  Country: CA (occurrence: CA)
  Receive Date: 20131211
  Receipt Date: 20131211
  Transmission Date: 20140711
  Serious: Yes (Hospitalization, Other)
  Sender: FDA-Public Use
  Company Number: CA-B.I. PHARMACEUTICALS,INC./RIDGEFIELD-2013-BI-40835CN

PATIENT
  Age: 81 Year
  Sex: Male
  Weight: 88 kg

DRUGS (5)
  1. MYLAN-AMLODIPINE [Concomitant]
  2. TEVA-HYDROCHLOROTHIAZIDE [Concomitant]
  3. TEVA-METOPROLOL [Concomitant]
  4. PRADAX [Suspect]
     Route: 048
  5. ALTACE [Concomitant]

REACTIONS (9)
  - Activated partial thromboplastin time prolonged [Recovered/Resolved]
  - Renal failure acute [Recovered/Resolved]
  - Blood creatinine increased [Recovered/Resolved]
  - Blood urea increased [Recovered/Resolved]
  - Carbon dioxide decreased [Recovered/Resolved]
  - Creatinine renal clearance decreased [Recovered/Resolved]
  - International normalised ratio increased [Recovered/Resolved]
  - Post procedural haematuria [Recovered/Resolved]
  - Toxicity to various agents [Recovered/Resolved]
